FAERS Safety Report 17122705 (Version 1)
Quarter: 2019Q4

REPORT INFORMATION
  Report Type: Spontaneous
  Country: US (occurrence: US)
  Receive Date: 20191206
  Receipt Date: 20191206
  Transmission Date: 20200122
  Serious: No
  Sender: FDA-Public Use
  Company Number: US-ROCHE-2417044

PATIENT
  Sex: Male

DRUGS (2)
  1. OCREVUS [Suspect]
     Active Substance: OCRELIZUMAB
     Indication: PRODUCT USED FOR UNKNOWN INDICATION
     Route: 065
  2. ACTHAR [Concomitant]
     Active Substance: CORTICOTROPIN

REACTIONS (2)
  - Urticaria [Not Recovered/Not Resolved]
  - Skin ulcer [Not Recovered/Not Resolved]
